FAERS Safety Report 6545419-8 (Version None)
Quarter: 2010Q1

REPORT INFORMATION
  Report Type: 
  Country: None (occurrence: None)
  Receive Date: 20100119
  Receipt Date: 20100104
  Transmission Date: 20100710
  Serious: Yes (Other)
  Sender: FDA-Public Use
  Company Number: 2010CREO-001

PATIENT
  Age: 60 Year
  Sex: Female
  Weight: 65.7716 kg

DRUGS (1)
  1. CREOMULSION COUGH MEDICINE [Suspect]
     Dosage: 1 TABLE SPOON / 2 HRS
     Dates: start: 20100101, end: 20100103

REACTIONS (3)
  - CHOKING SENSATION [None]
  - DIZZINESS [None]
  - NO THERAPEUTIC RESPONSE [None]
